FAERS Safety Report 19427395 (Version 1)
Quarter: 2021Q2

REPORT INFORMATION
  Report Type: Spontaneous
  Country: US (occurrence: US)
  Receive Date: 20210616
  Receipt Date: 20210616
  Transmission Date: 20210717
  Serious: Yes (Other)
  Sender: FDA-Public Use
  Company Number: None

PATIENT
  Age: 62 Year
  Sex: Male
  Weight: 121.5 kg

DRUGS (4)
  1. COENZYME Q10 [Concomitant]
     Active Substance: DIETARY SUPPLEMENT\UBIDECARENONE
  2. UBIQUINOL [Concomitant]
     Active Substance: UBIQUINOL
  3. 3.5 MM STENT [Concomitant]
  4. PRASUGREL 10MG TABLETS [Suspect]
     Active Substance: PRASUGREL
     Indication: STENT PLACEMENT
     Dosage: ?          QUANTITY:1 TABLET(S);?
     Route: 048
     Dates: start: 20210507, end: 20210615

REACTIONS (4)
  - Lip swelling [None]
  - Lip erythema [None]
  - Lip dry [None]
  - Cheilitis [None]

NARRATIVE: CASE EVENT DATE: 20210613
